FAERS Safety Report 18070498 (Version 1)
Quarter: 2020Q3

REPORT INFORMATION
  Report Type: Spontaneous
  Country: US (occurrence: US)
  Receive Date: 20200727
  Receipt Date: 20200727
  Transmission Date: 20201103
  Serious: Yes (Hospitalization, Other)
  Sender: FDA-Public Use
  Company Number: US-DRREDDYS-USA/USA/20/0125329

PATIENT
  Age: 61 Year
  Sex: Female

DRUGS (5)
  1. TERBUTALINE [Suspect]
     Active Substance: TERBUTALINE
     Indication: HAEMODYNAMIC INSTABILITY
  2. TERBUTALINE [Suspect]
     Active Substance: TERBUTALINE
     Indication: HEART RATE
  3. TERBUTALINE [Suspect]
     Active Substance: TERBUTALINE
     Indication: CARDIAC OUTPUT
     Route: 048
  4. DOBUTAMINE HYDROCHLORIDE. [Suspect]
     Active Substance: DOBUTAMINE HYDROCHLORIDE
     Indication: PRODUCT USED FOR UNKNOWN INDICATION
     Dosage: 6 MICROGRAMS/KILOGRAM/MINUTE
     Route: 065
  5. EPINEPHRINE. [Suspect]
     Active Substance: EPINEPHRINE
     Indication: CARDIOGENIC SHOCK
     Dosage: 0.05 MCG/KG/MIN
     Route: 065

REACTIONS (7)
  - Encephalopathy [Recovered/Resolved]
  - Cardiac failure [Unknown]
  - Seizure [Unknown]
  - Tricuspid valve incompetence [Unknown]
  - Cardiomyopathy [Unknown]
  - Mitral valve incompetence [Unknown]
  - Serotonin syndrome [Unknown]
